FAERS Safety Report 5974978-9 (Version None)
Quarter: 2008Q4

REPORT INFORMATION
  Report Type: 
  Country: None (occurrence: None)
  Receive Date: 20081128
  Receipt Date: 20081118
  Transmission Date: 20090506
  Serious: Yes (Death, Hospitalization)
  Sender: FDA-Public Use
  Company Number: PH-JNJFOC-200811 01882

PATIENT
  Age: 55 Year
  Sex: Male

DRUGS (1)
  1. DECITABINE (DECITABINE) LYOPHILIZED [Suspect]
     Indication: MYELODYSPLASTIC SYNDROME
     Dosage: 20 MG/M2, INTRAVENOUS; 20 MG/M2, INTRAVENOUS
     Route: 042
     Dates: start: 20081013, end: 20081017

REACTIONS (5)
  - CHEST X-RAY ABNORMAL [None]
  - CONDITION AGGRAVATED [None]
  - MYELODYSPLASTIC SYNDROME [None]
  - PANCYTOPENIA [None]
  - RESPIRATORY DISTRESS [None]
